FAERS Safety Report 17791330 (Version 1)
Quarter: 2020Q2

REPORT INFORMATION
  Report Type: Spontaneous
  Country: US (occurrence: US)
  Receive Date: 20200515
  Receipt Date: 20200515
  Transmission Date: 20200714
  Serious: No
  Sender: FDA-Public Use
  Company Number: US-BAYER-2020-081637

PATIENT
  Age: 91 Year
  Sex: Female

DRUGS (5)
  1. GAS-X [Concomitant]
     Active Substance: DIMETHICONE
     Dosage: UNK
  2. VITAMIN B12 [Concomitant]
     Active Substance: CYANOCOBALAMIN
     Dosage: UNK
  3. ONE A DAY WOMEN^S [Concomitant]
     Active Substance: MINERALS\VITAMINS
     Dosage: UNK
  4. BENEFIBER FIBER SUPPLEMENT [Concomitant]
     Dosage: UNK
  5. MIRALAX [Suspect]
     Active Substance: POLYETHYLENE GLYCOL 3350
     Indication: GASTROINTESTINAL DISORDER
     Dosage: 1.5 DF
     Route: 048
     Dates: start: 20200507

REACTIONS (2)
  - Prescribed underdose [Unknown]
  - Incorrect dose administered [Unknown]
